FAERS Safety Report 4517199-9 (Version None)
Quarter: 2004Q4

REPORT INFORMATION
  Report Type: 
  Country: None (occurrence: None)
  Receive Date: 20041202
  Receipt Date: 20041105
  Transmission Date: 20050328
  Serious: Yes (Life-Threatening, Hospitalization, Disabling)
  Sender: FDA-Public Use
  Company Number: DE-MERCK-0411DEU00107

PATIENT
  Age: 80 Year
  Sex: Female
  Weight: 65 kg

DRUGS (9)
  1. VIOXX [Suspect]
     Indication: OSTEOARTHRITIS
     Route: 048
     Dates: start: 20000921, end: 20040101
  2. VIOXX [Suspect]
     Route: 048
     Dates: start: 20040101
  3. BENAZEPRIL HYDROCHLORIDE AND HYDROCHLOROTHIAZIDE [Concomitant]
     Indication: CARDIAC FAILURE
     Route: 048
     Dates: start: 20000921
  4. BENAZEPRIL HYDROCHLORIDE AND HYDROCHLOROTHIAZIDE [Concomitant]
     Indication: ATRIAL FIBRILLATION
     Route: 048
     Dates: start: 20000921
  5. CLOPIDOGREL BISULFATE [Concomitant]
     Indication: HYPERTENSION
     Route: 048
     Dates: start: 20000921
  6. TRAMADOL HYDROCHLORIDE [Concomitant]
     Indication: PAIN
     Route: 048
     Dates: start: 20000921
  7. RANITIDINE [Concomitant]
     Indication: PROPHYLAXIS AGAINST GASTROINTESTINAL ULCER
     Route: 048
     Dates: start: 20000921
  8. ISOSORBIDE MONONITRATE [Concomitant]
     Indication: CORONARY ARTERY ATHEROSCLEROSIS
     Route: 048
     Dates: start: 20000921
  9. MOLSIDOMINE [Concomitant]
     Indication: CORONARY ARTERY ATHEROSCLEROSIS
     Route: 048
     Dates: start: 20000921

REACTIONS (1)
  - MYOCARDIAL INFARCTION [None]
